FAERS Safety Report 18975784 (Version 1)
Quarter: 2021Q1

REPORT INFORMATION
  Report Type: Spontaneous
  Country: CN (occurrence: CN)
  Receive Date: 20210305
  Receipt Date: 20210305
  Transmission Date: 20210420
  Serious: Yes (Other)
  Sender: FDA-Public Use
  Company Number: CN-PFIZER INC-2021218374

PATIENT
  Age: 49 Year
  Sex: Male
  Weight: 66 kg

DRUGS (2)
  1. METHOTREXATE. [Suspect]
     Active Substance: METHOTREXATE
     Indication: CHEMOTHERAPY
     Dosage: 5.400 G, 1X/DAY
     Route: 041
     Dates: start: 20210202, end: 20210202
  2. VINDESINE SULFATE [Concomitant]
     Active Substance: VINDESINE SULFATE
     Indication: CHEMOTHERAPY
     Dosage: 4.000 MG, 1X/DAY
     Route: 041
     Dates: start: 20210202, end: 20210202

REACTIONS (2)
  - Acute kidney injury [Recovering/Resolving]
  - Drug level increased [Recovering/Resolving]

NARRATIVE: CASE EVENT DATE: 20210203
